FAERS Safety Report 16747935 (Version 2)
Quarter: 2019Q3

REPORT INFORMATION
  Report Type: Report from Study
  Country: US (occurrence: US)
  Receive Date: 20190827
  Receipt Date: 20190910
  Transmission Date: 20191005
  Serious: Yes (Hospitalization, Other)
  Sender: FDA-Public Use
  Company Number: US-BRISTOL-MYERS SQUIBB COMPANY-BMS-2019-081765

PATIENT
  Age: 29 Year
  Sex: Male
  Weight: 69.2 kg

DRUGS (3)
  1. DASATINIB. [Suspect]
     Active Substance: DASATINIB
     Indication: ALVEOLAR RHABDOMYOSARCOMA
     Dosage: 1400 MILLIGRAM
     Route: 048
     Dates: start: 20190729
  2. GANITUMAB [Suspect]
     Active Substance: GANITUMAB
     Indication: ALVEOLAR RHABDOMYOSARCOMA
     Dosage: 1260 MILLIGRAM
     Route: 042
     Dates: start: 20190729
  3. DASATINIB. [Suspect]
     Active Substance: DASATINIB
     Indication: PRODUCT USED FOR UNKNOWN INDICATION
     Dosage: UNK
     Route: 048
     Dates: start: 20190820

REACTIONS (5)
  - Hypoxia [Recovered/Resolved with Sequelae]
  - Hyponatraemia [Recovered/Resolved]
  - Pneumonitis [Recovered/Resolved with Sequelae]
  - Transaminases increased [Unknown]
  - Pulmonary haemorrhage [Recovered/Resolved]

NARRATIVE: CASE EVENT DATE: 20190729
